FAERS Safety Report 15963659 (Version 1)
Quarter: 2019Q1

REPORT INFORMATION
  Report Type: Spontaneous
  Country: US (occurrence: US)
  Receive Date: 20190214
  Receipt Date: 20190214
  Transmission Date: 20190417
  Serious: No
  Sender: FDA-Public Use
  Company Number: US-COLLEGIUM PHARMACEUTICAL, INC.-2018CGM00357

PATIENT
  Sex: Female
  Weight: 72.56 kg

DRUGS (7)
  1. XTAMPZA ER [Suspect]
     Active Substance: OXYCODONE
     Indication: BACK PAIN
     Dosage: 15 MG, 2X/DAY EVERY 12 HOURS
     Dates: start: 2018, end: 2018
  2. FENTANYL. [Suspect]
     Active Substance: FENTANYL
     Dosage: 50 ?G, EVERY 72 HOURS
     Route: 061
     Dates: start: 2018, end: 2018
  3. GABAPENTIN. [Concomitant]
     Active Substance: GABAPENTIN
  4. XTAMPZA ER [Suspect]
     Active Substance: OXYCODONE
     Indication: BACK PAIN
     Dosage: 18 MG, 2X/DAY (EVERY 12 HOURS)
     Route: 048
     Dates: start: 2018, end: 2018
  5. XTAMPZA ER [Suspect]
     Active Substance: OXYCODONE
     Dosage: 18 MG, 2X/DAY
     Route: 048
     Dates: start: 2018
  6. FENTANYL. [Suspect]
     Active Substance: FENTANYL
     Indication: BACK PAIN
     Dosage: 50 ?G, EVERY 72 HOURS
     Dates: end: 2018
  7. OXYCODONE AND ACETAMINOPHEN [Concomitant]
     Active Substance: ACETAMINOPHEN\OXYCODONE HYDROCHLORIDE
     Dosage: UNK, EVERY 6 HOURS AS NEEDED

REACTIONS (10)
  - Drug effect incomplete [Not Recovered/Not Resolved]
  - Dyspepsia [Recovered/Resolved]
  - Pain [Unknown]
  - Crying [Recovered/Resolved]
  - Product prescribing error [Recovered/Resolved]
  - Discomfort [Not Recovered/Not Resolved]
  - Dizziness [Not Recovered/Not Resolved]
  - Abdominal pain upper [Not Recovered/Not Resolved]
  - Drug interaction [Recovered/Resolved]
  - Diarrhoea [Recovered/Resolved]

NARRATIVE: CASE EVENT DATE: 2018
